FAERS Safety Report 6873993-0 (Version None)
Quarter: 2010Q3

REPORT INFORMATION
  Report Type: 
  Country: None (occurrence: None)
  Receive Date: 20100723
  Receipt Date: 20090407
  Transmission Date: 20110219
  Serious: No
  Sender: FDA-Public Use
  Company Number: US-PFIZER INC-2009198265

PATIENT
  Sex: Male
  Weight: 88.435 kg

DRUGS (2)
  1. CHANTIX [Suspect]
     Indication: SMOKING CESSATION THERAPY
     Dosage: 1 MG, 2X/DAY
     Dates: start: 20090330
  2. INDERAL [Concomitant]
     Indication: HYPERTENSION

REACTIONS (1)
  - HEADACHE [None]
